FAERS Safety Report 7451473-1 (Version None)
Quarter: 2011Q2

REPORT INFORMATION
  Report Type: 
  Country: None (occurrence: None)
  Receive Date: 20110502
  Receipt Date: 20110422
  Transmission Date: 20111010
  Serious: Yes (Hospitalization)
  Sender: FDA-Public Use
  Company Number: B0715569A

PATIENT
  Sex: Female
  Weight: 43 kg

DRUGS (21)
  1. SANDIMMUNE [Suspect]
     Dosage: 140MG PER DAY
     Route: 065
     Dates: start: 20070502, end: 20070603
  2. METHOTREXATE [Concomitant]
     Dosage: 7MGM2 PER DAY
     Route: 065
     Dates: start: 20070424, end: 20070424
  3. ALDACTONE [Concomitant]
     Dosage: 25MG PER DAY
     Route: 048
     Dates: start: 20070331, end: 20070427
  4. FLUDARA [Suspect]
     Indication: STEM CELL TRANSPLANT
     Dosage: 42MG PER DAY
     Route: 042
     Dates: start: 20070416, end: 20070420
  5. SANDIMMUNE [Suspect]
     Dosage: 220MG PER DAY
     Route: 065
     Dates: start: 20070428, end: 20070429
  6. NEUTROGIN [Concomitant]
     Dates: start: 20070429, end: 20070505
  7. GRAN [Concomitant]
     Dates: start: 20070611, end: 20070611
  8. CIPROXAN [Concomitant]
     Dosage: 600MG PER DAY
     Route: 048
     Dates: start: 20070405, end: 20070511
  9. SANDIMMUNE [Suspect]
     Dosage: 250MG PER DAY
     Route: 065
     Dates: start: 20070604, end: 20070619
  10. FUROSEMIDE [Concomitant]
     Dosage: 10MG PER DAY
     Route: 048
     Dates: start: 20070331, end: 20070614
  11. TAKEPRON [Concomitant]
     Dosage: 15MG PER DAY
     Route: 048
     Dates: start: 20070409, end: 20070614
  12. ZOVIRAX [Concomitant]
     Dosage: 1000MG PER DAY
     Route: 048
     Dates: start: 20070416, end: 20070527
  13. SANDIMMUNE [Suspect]
     Dosage: 340MG PER DAY
     Route: 065
     Dates: start: 20070430, end: 20070501
  14. ATARAX [Concomitant]
     Dosage: 25MG PER DAY
     Dates: start: 20070422, end: 20070501
  15. METHOTREXATE [Concomitant]
     Indication: IMMUNOSUPPRESSION
     Dosage: 10MGM2 PER DAY
     Route: 065
     Dates: start: 20070422, end: 20070422
  16. URSO 250 [Concomitant]
     Dosage: 600MG PER DAY
     Route: 048
     Dates: start: 20070330, end: 20070614
  17. FUNGUARD [Concomitant]
     Dosage: 50MG PER DAY
     Route: 042
     Dates: start: 20070410, end: 20070513
  18. ALKERAN [Suspect]
     Indication: STEM CELL TRANSPLANT
     Dosage: 98MG PER DAY
     Route: 042
     Dates: start: 20070421, end: 20070422
  19. SANDIMMUNE [Suspect]
     Indication: IMMUNOSUPPRESSION
     Dosage: 138MG PER DAY
     Route: 065
     Dates: start: 20070423, end: 20070427
  20. KYTRIL [Concomitant]
     Dosage: 3MG PER DAY
     Dates: start: 20070416, end: 20070423
  21. PRIMPERAN TAB [Concomitant]
     Dosage: 2IUAX PER DAY
     Dates: start: 20070422, end: 20070506

REACTIONS (3)
  - FEBRILE NEUTROPENIA [None]
  - PSEUDOMEMBRANOUS COLITIS [None]
  - RENAL IMPAIRMENT [None]
